FAERS Safety Report 8556020-9 (Version None)
Quarter: 2012Q3

REPORT INFORMATION
  Report Type: 
  Country: None (occurrence: None)
  Receive Date: 20120719
  Receipt Date: 20120705
  Transmission Date: 20120928
  Serious: Yes (Other)
  Sender: FDA-Public Use
  Company Number: 2012MA008542

PATIENT
  Sex: Male

DRUGS (2)
  1. DIAZEPAM [Suspect]
     Dosage: 10 MG; BID
     Dates: start: 20120422
  2. VALPROATE ACID (VALPROIC ACID) [Suspect]

REACTIONS (42)
  - IRRITABILITY [None]
  - AGITATION [None]
  - DIZZINESS [None]
  - BALANCE DISORDER [None]
  - ERECTILE DYSFUNCTION [None]
  - DYSKINESIA [None]
  - LIBIDO DISORDER [None]
  - TREMOR [None]
  - MALAISE [None]
  - AKATHISIA [None]
  - RASH MACULO-PAPULAR [None]
  - RASH [None]
  - DYSARTHRIA [None]
  - DRUG DEPENDENCE [None]
  - DECREASED APPETITE [None]
  - BREAST PAIN [None]
  - CONCUSSION [None]
  - SOMNOLENCE [None]
  - REFLEXES ABNORMAL [None]
  - MEMORY IMPAIRMENT [None]
  - ABNORMAL BEHAVIOUR [None]
  - BREAST DISCHARGE [None]
  - DISINHIBITION [None]
  - SPEECH DISORDER [None]
  - INFLUENZA LIKE ILLNESS [None]
  - ANXIETY [None]
  - NEUROLEPTIC MALIGNANT SYNDROME [None]
  - IMPULSIVE BEHAVIOUR [None]
  - ANGER [None]
  - ABDOMINAL PAIN [None]
  - FATIGUE [None]
  - ABDOMINAL PAIN UPPER [None]
  - HYPERSENSITIVITY [None]
  - SEDATION [None]
  - EXCESSIVE MASTURBATION [None]
  - NAUSEA [None]
  - DRUG EFFECT INCREASED [None]
  - GYNAECOMASTIA [None]
  - DYSPNOEA [None]
  - AGGRESSION [None]
  - VISUAL IMPAIRMENT [None]
  - VOMITING [None]
